FAERS Safety Report 6958455-4 (Version None)
Quarter: 2010Q3

REPORT INFORMATION
  Report Type: 
  Country: None (occurrence: None)
  Receive Date: 20100830
  Receipt Date: 20100830
  Transmission Date: 20110219
  Serious: Yes (Other)
  Sender: FDA-Public Use
  Company Number: None

PATIENT
  Age: 30 Year
  Sex: Female
  Weight: 57.1532 kg

DRUGS (2)
  1. PERCOCET [Suspect]
     Indication: CYST REMOVAL
     Dates: start: 20070101
  2. PERCOCET [Suspect]
     Indication: CYST REMOVAL
     Dates: start: 20080101

REACTIONS (1)
  - AFFECTIVE DISORDER [None]
